FAERS Safety Report 8137751-1 (Version None)
Quarter: 2012Q1

REPORT INFORMATION
  Report Type: 
  Country: None (occurrence: None)
  Receive Date: 20120213
  Receipt Date: 20120131
  Transmission Date: 20120608
  Serious: No
  Sender: FDA-Public Use
  Company Number: ALK_01985_2011

PATIENT
  Sex: Female

DRUGS (5)
  1. LAMICTAL [Concomitant]
  2. ZOLOFT [Concomitant]
  3. LEVOTHYROXINE SODIUM [Concomitant]
  4. VIVITROL [Suspect]
     Indication: ALCOHOLISM
     Dosage: (INTRAMUSCULAR)
     Route: 030
     Dates: start: 20110804, end: 20110804
  5. MULTI-VITAMIN [Concomitant]

REACTIONS (15)
  - NECROSIS [None]
  - INJECTION SITE SWELLING [None]
  - DEVICE OCCLUSION [None]
  - INJECTION SITE INDURATION [None]
  - DIZZINESS [None]
  - INDURATION [None]
  - INJECTION SITE MASS [None]
  - NAUSEA [None]
  - INJECTION SITE ERYTHEMA [None]
  - INJECTION SITE IRRITATION [None]
  - ABSCESS [None]
  - HAEMATOMA INFECTION [None]
  - INJECTION SITE WARMTH [None]
  - CELLULITIS [None]
  - INJECTION SITE NODULE [None]
